FAERS Safety Report 4924016-1 (Version None)
Quarter: 2006Q1

REPORT INFORMATION
  Report Type: 
  Country: None (occurrence: None)
  Receive Date: 20060227
  Receipt Date: 20051012
  Transmission Date: 20060701
  Serious: Yes (Hospitalization, Other)
  Sender: FDA-Public Use
  Company Number: US-MERCK-0510USA07097

PATIENT
  Age: 43 Year
  Sex: Male
  Weight: 85 kg

DRUGS (10)
  1. VIOXX [Suspect]
     Indication: ARTHRITIS
     Route: 048
     Dates: start: 19990924, end: 19991231
  2. VIOXX [Suspect]
     Route: 048
     Dates: start: 20040109, end: 20040901
  3. VIOXX [Suspect]
     Route: 048
     Dates: start: 20020508, end: 20020601
  4. VIOXX [Suspect]
     Route: 048
     Dates: start: 19990924, end: 19991231
  5. VIOXX [Suspect]
     Route: 048
     Dates: start: 20020508, end: 20020601
  6. VIOXX [Suspect]
     Route: 048
     Dates: start: 20040109, end: 20040901
  7. LABETALOL HYDROCHLORIDE [Concomitant]
     Indication: HYPERTENSION
     Route: 065
     Dates: start: 19990901
  8. ADALAT [Concomitant]
     Indication: HYPERTENSION
     Route: 065
     Dates: start: 19991001
  9. ATACAND [Concomitant]
     Indication: HYPERTENSION
     Route: 065
     Dates: start: 19991101
  10. CATAPRES [Concomitant]
     Indication: HYPERTENSION
     Route: 065
     Dates: start: 19990101

REACTIONS (4)
  - ANKLE FRACTURE [None]
  - DEEP VEIN THROMBOSIS [None]
  - EYE DISORDER [None]
  - PULMONARY EMBOLISM [None]
